FAERS Safety Report 7274359-4 (Version None)
Quarter: 2011Q1

REPORT INFORMATION
  Report Type: 
  Country: None (occurrence: None)
  Receive Date: 20110131
  Receipt Date: 20110131
  Transmission Date: 20110831
  Serious: Yes (Hospitalization)
  Sender: FDA-Public Use
  Company Number: None

PATIENT
  Sex: Male

DRUGS (18)
  1. LEUPROLIDE ACETATE [Concomitant]
  2. ASPIRIN [Concomitant]
  3. NITROGLYCERIN [Concomitant]
  4. GABAPENTIN [Concomitant]
  5. HYDROCODONE BITARTRATE + ACETAMINOPHEN [Concomitant]
  6. COREG [Concomitant]
  7. VYTORIN [Concomitant]
  8. OMEPRAZOLE [Concomitant]
  9. AMLODIPINE [Concomitant]
  10. PROAIR HFA [Concomitant]
  11. VITAMIN D [Concomitant]
  12. LORAZEPAM [Concomitant]
  13. ONDANSETRON [Concomitant]
  14. NIASPAN [Concomitant]
  15. QVAR 40 [Concomitant]
  16. REVLIMID [Suspect]
     Indication: MULTIPLE MYELOMA
     Dosage: 25 MG DAILY ORALLY
     Route: 048
     Dates: start: 20080303
  17. ZOLPIDEM [Concomitant]
  18. EPOETIN [Concomitant]

REACTIONS (1)
  - FEBRILE NEUTROPENIA [None]
